FAERS Safety Report 6172411-8 (Version None)
Quarter: 2009Q2

REPORT INFORMATION
  Report Type: 
  Country: None (occurrence: None)
  Receive Date: 20090424
  Receipt Date: 20090123
  Transmission Date: 20091009
  Serious: No
  Sender: FDA-Public Use
  Company Number: ALL1-2009-00181

PATIENT
  Age: 11 Year
  Sex: Male

DRUGS (4)
  1. VYVANSE [Suspect]
     Indication: ATTENTION DEFICIT/HYPERACTIVITY DISORDER
     Dosage: 50 MG, 1X/DAY:QD, ORAL ; 70 MG, 1X/DAY:QD, ORAL
     Route: 048
     Dates: start: 20080601, end: 20081218
  2. VYVANSE [Suspect]
     Indication: ATTENTION DEFICIT/HYPERACTIVITY DISORDER
     Dosage: 50 MG, 1X/DAY:QD, ORAL ; 70 MG, 1X/DAY:QD, ORAL
     Route: 048
     Dates: end: 20090123
  3. VYVANSE [Suspect]
     Indication: ATTENTION DEFICIT/HYPERACTIVITY DISORDER
     Dosage: 50 MG, 1X/DAY:QD, ORAL ; 70 MG, 1X/DAY:QD, ORAL
     Route: 048
     Dates: start: 20081219
  4. RISPERDAL [Concomitant]

REACTIONS (1)
  - EYE ROLLING [None]
